FAERS Safety Report 6380501-X (Version None)
Quarter: 2009Q3

REPORT INFORMATION
  Report Type: 
  Country: None (occurrence: None)
  Receive Date: 20090924
  Receipt Date: 20090831
  Transmission Date: 20100115
  Serious: Yes (Other)
  Sender: FDA-Public Use
  Company Number: CIP09002611

PATIENT
  Sex: Female

DRUGS (1)
  1. ACTONEL [Suspect]
     Indication: OSTEOPOROSIS
     Dosage: 150 MG ONCE A MONTH, ORAL
     Route: 048
     Dates: start: 20090701, end: 20090801

REACTIONS (8)
  - EXTRAOCULAR MUSCLE DISORDER [None]
  - EYE PAIN [None]
  - EYE SWELLING [None]
  - EYELID PTOSIS [None]
  - INFLUENZA LIKE ILLNESS [None]
  - PHOTOPHOBIA [None]
  - RESTLESSNESS [None]
  - SLEEP DISORDER [None]
